FAERS Safety Report 9808119 (Version 2)
Quarter: 2014Q1

REPORT INFORMATION
  Report Type: Spontaneous
  Country: US (occurrence: US)
  Receive Date: 20140110
  Receipt Date: 20140123
  Transmission Date: 20141002
  Serious: Yes (Death, Hospitalization)
  Sender: FDA-Public Use
  Company Number: US-JNJFOC-20140103437

PATIENT
  Age: 55 Year
  Sex: Female

DRUGS (10)
  1. TRAMADOL [Suspect]
     Indication: SUICIDE ATTEMPT
     Route: 048
  2. ACETAMINOPHEN/HYDROCODONE [Suspect]
     Indication: SUICIDE ATTEMPT
     Route: 048
  3. ATENOLOL [Suspect]
     Indication: SUICIDE ATTEMPT
     Route: 048
  4. AMITRIPTYLINE [Suspect]
     Indication: SUICIDE ATTEMPT
     Route: 048
  5. ISOSORBIDE DINITRATE [Suspect]
     Indication: SUICIDE ATTEMPT
     Route: 048
  6. SALICYLATES NOS [Suspect]
     Indication: SUICIDE ATTEMPT
     Route: 048
  7. CHLORPROMAZINE [Suspect]
     Indication: SUICIDE ATTEMPT
     Route: 048
  8. DIAZEPAM [Suspect]
     Indication: SUICIDE ATTEMPT
     Route: 048
  9. DULOXETINE [Suspect]
     Indication: SUICIDE ATTEMPT
     Route: 048
  10. ALCOHOL [Suspect]
     Indication: SUICIDE ATTEMPT
     Route: 048

REACTIONS (1)
  - Toxicity to various agents [Fatal]
